FAERS Safety Report 17572287 (Version 1)
Quarter: 2020Q1

REPORT INFORMATION
  Report Type: Spontaneous
  Country: US (occurrence: US)
  Receive Date: 20200317
  Receipt Date: 20200317
  Transmission Date: 20200409
  Serious: Yes (Hospitalization, Other)
  Sender: FDA-Public Use
  Company Number: None

PATIENT
  Sex: Female

DRUGS (24)
  1. PANTOPRAZOLE [Concomitant]
     Active Substance: PANTOPRAZOLE
  2. GABAPENTIN. [Concomitant]
     Active Substance: GABAPENTIN
  3. LEVETIRACETA [Concomitant]
  4. LISINOPRIL. [Concomitant]
     Active Substance: LISINOPRIL
  5. NIFEDIPINE. [Concomitant]
     Active Substance: NIFEDIPINE
  6. CIPROFLOXACIN. [Concomitant]
     Active Substance: CIPROFLOXACIN
  7. CREON [Concomitant]
     Active Substance: PANCRELIPASE AMYLASE\PANCRELIPASE LIPASE\PANCRELIPASE PROTEASE
  8. VITAMIN D [Concomitant]
     Active Substance: VITAMIN D NOS
  9. PROCRIT [Suspect]
     Active Substance: ERYTHROPOIETIN
     Indication: ANAEMIA
     Route: 058
     Dates: start: 20200116
  10. ADEMLOG SOLO [Concomitant]
  11. CEPHALEXIN. [Concomitant]
     Active Substance: CEPHALEXIN
  12. ONETOUCH DEL MIS PLUS [Concomitant]
  13. PEN NEEDLES MIS [Concomitant]
  14. ATVORVASTATIN [Concomitant]
  15. ISOSORB MONO [Concomitant]
     Active Substance: ISOSORBIDE MONONITRATE
  16. ONETOUCH TES ULTRA [Concomitant]
  17. PHENYTOIN. [Concomitant]
     Active Substance: PHENYTOIN
  18. FUROSEMIDE. [Concomitant]
     Active Substance: FUROSEMIDE
  19. METOLAZONE. [Concomitant]
     Active Substance: METOLAZONE
  20. CALCITRIOL. [Concomitant]
     Active Substance: CALCITRIOL
  21. FEROSUL [Concomitant]
     Active Substance: FERROUS SULFATE
  22. BASAGLAR [Concomitant]
     Active Substance: INSULIN GLARGINE
  23. SODIUM BICAR [Concomitant]
  24. SUCRALFATE. [Concomitant]
     Active Substance: SUCRALFATE

REACTIONS (2)
  - Fistula [None]
  - Infection [None]
